FAERS Safety Report 9529529 (Version 1)
Quarter: 2013Q1

REPORT INFORMATION
  Report Type: Spontaneous
  Country: None (occurrence: None)
  Receive Date: 20130320
  Receipt Date: 20130320
  Transmission Date: 20140127
  Serious: Yes (Life-Threatening)
  Sender: FDA-Public Use
  Company Number: EUS-2012-00980

PATIENT
  Age: 2 Year
  Sex: Male

DRUGS (1)
  1. ERWINASE [Suspect]
     Indication: ACUTE LYMPHOCYTIC LEUKAEMIA
     Dosage: (12200 IU)
     Route: 042
     Dates: start: 20110728, end: 20110728

REACTIONS (1)
  - Anaphylactic shock [None]
